FAERS Safety Report 9521608 (Version 2)
Quarter: 2013Q4

REPORT INFORMATION
  Report Type: Spontaneous
  Country: US (occurrence: US)
  Receive Date: 20130913
  Receipt Date: 20131017
  Transmission Date: 20140711
  Serious: Yes (Other)
  Sender: FDA-Public Use
  Company Number: US-PFIZER INC-2013261067

PATIENT
  Age: 87 Year
  Sex: Female

DRUGS (3)
  1. XALKORI [Suspect]
     Indication: LUNG NEOPLASM MALIGNANT
     Dosage: 250 MG, CYCLIC (250 MG, 2X/DAY ON M-W-F)
     Route: 048
     Dates: start: 20121219, end: 20130124
  2. XALKORI [Suspect]
     Dosage: UNK,
     Dates: start: 20130208
  3. XALKORI [Suspect]
     Dosage: UNK, FULL DOSE

REACTIONS (7)
  - Cardiac failure congestive [Unknown]
  - Local swelling [Recovering/Resolving]
  - Dyspnoea [Recovered/Resolved with Sequelae]
  - Brain natriuretic peptide increased [Unknown]
  - Constipation [Not Recovered/Not Resolved]
  - Tremor [Unknown]
  - Back pain [Unknown]
